FAERS Safety Report 20523612 (Version 2)
Quarter: 2022Q2

REPORT INFORMATION
  Report Type: Report from Study
  Country: CA (occurrence: CA)
  Receive Date: 20220228
  Receipt Date: 20220426
  Transmission Date: 20220721
  Serious: Yes (Other)
  Sender: FDA-Public Use
  Company Number: CA-JNJFOC-20220254620

PATIENT
  Sex: Female

DRUGS (1)
  1. REMICADE [Suspect]
     Active Substance: INFLIXIMAB
     Indication: Rheumatoid arthritis
     Dosage: PATIENT RESUMED TREATMENT ON 20-MAR-2022
     Route: 042
     Dates: start: 20080107

REACTIONS (1)
  - Gastrointestinal carcinoma [Recovering/Resolving]
